FAERS Safety Report 9686145 (Version 1)
Quarter: 2013Q4

REPORT INFORMATION
  Report Type: Spontaneous
  Country: US (occurrence: US)
  Receive Date: 20131113
  Receipt Date: 20131113
  Transmission Date: 20140711
  Serious: No
  Sender: FDA-Public Use
  Company Number: US-BAYER-2013-135541

PATIENT
  Age: 57 Year
  Sex: Female
  Weight: 56.69 kg

DRUGS (1)
  1. ULTRAVIST [Suspect]
     Indication: COMPUTERISED TOMOGRAM ABDOMEN
     Dosage: 100 ML, ONCE
     Route: 042
     Dates: start: 20131105

REACTIONS (2)
  - Urticaria [Recovered/Resolved]
  - Lacrimation increased [Recovered/Resolved]
